FAERS Safety Report 4270424-4 (Version None)
Quarter: 2004Q1

REPORT INFORMATION
  Report Type: 
  Country: None (occurrence: None)
  Receive Date: 20040114
  Receipt Date: 20040107
  Transmission Date: 20041129
  Serious: Yes (Hospitalization)
  Sender: FDA-Public Use
  Company Number: GB-BRISTOL-MYERS SQUIBB COMPANY-12472056

PATIENT
  Age: 37 Year
  Sex: Female
  Weight: 88 kg

DRUGS (1)
  1. PACLITAXEL [Suspect]
     Route: 042
     Dates: start: 20031219, end: 20031219

REACTIONS (2)
  - PAIN IN EXTREMITY [None]
  - PYREXIA [None]
